FAERS Safety Report 8313905-6 (Version None)
Quarter: 2012Q2

REPORT INFORMATION
  Report Type: 
  Country: None (occurrence: None)
  Receive Date: 20120426
  Receipt Date: 20120426
  Transmission Date: 20120825
  Serious: Yes (Hospitalization)
  Sender: FDA-Public Use
  Company Number: None

PATIENT
  Age: 82 Year
  Sex: Female
  Weight: 45 kg

DRUGS (2)
  1. METHYLPREDNISOLONE ACETATE [Concomitant]
     Indication: CHRONIC OBSTRUCTIVE PULMONARY DISEASE
     Dosage: 40 MG
     Route: 042
     Dates: start: 20120201, end: 20120207
  2. PREDNISONE [Suspect]
     Indication: RHEUMATOID ARTHRITIS
     Dosage: 7 MG
     Route: 048
     Dates: start: 20110201, end: 20120201

REACTIONS (7)
  - PYREXIA [None]
  - FATIGUE [None]
  - IATROGENIC INJURY [None]
  - CONDITION AGGRAVATED [None]
  - CHRONIC OBSTRUCTIVE PULMONARY DISEASE [None]
  - HYPOTENSION [None]
  - ADRENAL INSUFFICIENCY [None]
